FAERS Safety Report 5537098-3 (Version None)
Quarter: 2007Q4

REPORT INFORMATION
  Report Type: 
  Country: None (occurrence: None)
  Receive Date: 20071207
  Receipt Date: 20071128
  Transmission Date: 20080405
  Serious: Yes (Other)
  Sender: FDA-Public Use
  Company Number: US-WYE-H01522507

PATIENT
  Age: 45 Year
  Sex: Female

DRUGS (1)
  1. EFFEXOR XR [Suspect]
     Indication: MAJOR DEPRESSION
     Dosage: 75 MG FREQUENCY UNSPECIFIED
     Route: 048
     Dates: start: 20071101, end: 20071101

REACTIONS (2)
  - EYE ROLLING [None]
  - LOSS OF CONSCIOUSNESS [None]
